FAERS Safety Report 20897147 (Version 2)
Quarter: 2022Q2

REPORT INFORMATION
  Report Type: Spontaneous
  Country: US (occurrence: US)
  Receive Date: 20220531
  Receipt Date: 20220617
  Transmission Date: 20220721
  Serious: No
  Sender: FDA-Public Use
  Company Number: US-PFIZER INC-202200762125

PATIENT
  Age: 42 Year
  Sex: Female
  Weight: 54.43 kg

DRUGS (3)
  1. PAXLOVID [Interacting]
     Active Substance: NIRMATRELVIR\RITONAVIR
     Indication: COVID-19 treatment
     Dosage: 3 DF, 2X/DAY (PF-07321332: 150MG TABLET/ RITRONAVIR: 100MG TABLET)
     Route: 048
     Dates: start: 20220520, end: 20220523
  2. SIROLIMUS [Interacting]
     Active Substance: SIROLIMUS
     Indication: Heart transplant
     Dosage: 0.5 MG, 1X/DAY
     Route: 048
     Dates: start: 2006
  3. TACROLIMUS [Interacting]
     Active Substance: TACROLIMUS
     Indication: Heart transplant
     Dosage: 0.5 MG, 2X/DAY
     Route: 048

REACTIONS (8)
  - Drug interaction [Unknown]
  - Immunosuppressant drug level increased [Unknown]
  - Blood glucose increased [Unknown]
  - Pain [Unknown]
  - Nausea [Unknown]
  - Asthenia [Unknown]
  - Heart rate irregular [Recovered/Resolved]
  - Palpitations [Recovered/Resolved]

NARRATIVE: CASE EVENT DATE: 20220501
